FAERS Safety Report 20059546 (Version 1)
Quarter: 2021Q4

REPORT INFORMATION
  Report Type: Report from Study
  Country: DE (occurrence: DE)
  Receive Date: 20211111
  Receipt Date: 20211111
  Transmission Date: 20220303
  Serious: Yes (Hospitalization, Other)
  Sender: FDA-Public Use
  Company Number: DE-SAMSUNG BIOEPIS-SB-2021-09801

PATIENT
  Age: 78 Year
  Sex: Male

DRUGS (4)
  1. METHOTREXATE [Suspect]
     Active Substance: METHOTREXATE
     Indication: Product used for unknown indication
     Dosage: 7.5 MILLIGRAM
     Route: 065
  2. METHOTREXATE [Suspect]
     Active Substance: METHOTREXATE
     Dosage: 15 MILLIGRAM, QW
     Route: 065
     Dates: start: 202009
  3. ETANERCEPT [Suspect]
     Active Substance: ETANERCEPT
     Indication: Rheumatoid arthritis
     Dosage: 50 MILLIGRAM, BIWEEKLY
     Route: 065
     Dates: start: 201612, end: 202009
  4. ENBREL [Concomitant]
     Active Substance: ETANERCEPT
     Indication: Product used for unknown indication
     Dosage: 50 MILLIGRAM
     Route: 065
     Dates: start: 201302, end: 201612

REACTIONS (15)
  - Klebsiella infection [Unknown]
  - Pseudomonas infection [Unknown]
  - Pleural effusion [Not Recovered/Not Resolved]
  - Enterococcal infection [Unknown]
  - Rib fracture [Unknown]
  - Gangrene [Not Recovered/Not Resolved]
  - Traumatic haemothorax [Unknown]
  - Upper gastrointestinal haemorrhage [Unknown]
  - Infectious pleural effusion [Unknown]
  - Gastrooesophageal reflux disease [Unknown]
  - Sarcoma [Unknown]
  - Gastric ulcer [Unknown]
  - Sepsis [Not Recovered/Not Resolved]
  - Femur fracture [Unknown]
  - Product use issue [Unknown]

NARRATIVE: CASE EVENT DATE: 20200821
